FAERS Safety Report 17655752 (Version 3)
Quarter: 2020Q3

REPORT INFORMATION
  Report Type: Spontaneous
  Country: US (occurrence: US)
  Receive Date: 20200410
  Receipt Date: 20200828
  Transmission Date: 20201102
  Serious: Yes (Hospitalization, Other)
  Sender: FDA-Public Use
  Company Number: US-ASTRAZENECA-2019SE10629

PATIENT
  Age: 65 Year
  Sex: Female
  Weight: 86.2 kg

DRUGS (146)
  1. NEXIUM [Suspect]
     Active Substance: ESOMEPRAZOLE MAGNESIUM
     Indication: GASTROOESOPHAGEAL REFLUX DISEASE
     Route: 048
     Dates: start: 20070723
  2. OMEPRAZOLE. [Suspect]
     Active Substance: OMEPRAZOLE
     Indication: GASTROOESOPHAGEAL REFLUX DISEASE
     Dosage: GENERIC
     Route: 065
     Dates: start: 2009
  3. DEXILANT [Suspect]
     Active Substance: DEXLANSOPRAZOLE
     Indication: GASTROOESOPHAGEAL REFLUX DISEASE
     Route: 065
     Dates: start: 2010, end: 2011
  4. DEXILANT [Suspect]
     Active Substance: DEXLANSOPRAZOLE
     Indication: GASTROOESOPHAGEAL REFLUX DISEASE
     Route: 048
     Dates: start: 20100830
  5. PROTONIX [Suspect]
     Active Substance: PANTOPRAZOLE SODIUM
     Indication: GASTROOESOPHAGEAL REFLUX DISEASE
     Dosage: GENERIC
     Route: 065
     Dates: start: 2011, end: 2018
  6. SEROQUEL [Concomitant]
     Active Substance: QUETIAPINE FUMARATE
  7. CLONAZEPAM. [Concomitant]
     Active Substance: CLONAZEPAM
  8. LORAZEPAM. [Concomitant]
     Active Substance: LORAZEPAM
  9. PATADAY [Concomitant]
     Active Substance: OLOPATADINE HYDROCHLORIDE
  10. DIAZEPAM. [Concomitant]
     Active Substance: DIAZEPAM
  11. NITROFURANTOIN. [Concomitant]
     Active Substance: NITROFURANTOIN
  12. VITAMIN D2 [Concomitant]
     Active Substance: ERGOCALCIFEROL
  13. ALLOPURINOL. [Concomitant]
     Active Substance: ALLOPURINOL
  14. POTASSIUM CITRATE. [Concomitant]
     Active Substance: POTASSIUM CITRATE
  15. DOXYCYCLINE HYCLATE. [Concomitant]
     Active Substance: DOXYCYCLINE HYCLATE
  16. BENZONATATE. [Concomitant]
     Active Substance: BENZONATATE
  17. SULFAMETH/TRIMETHOPRIM [Concomitant]
     Active Substance: SULFAMETHOXAZOLE\TRIMETHOPRIM
  18. LEVEMIR [Concomitant]
     Active Substance: INSULIN DETEMIR
  19. GENERLAC [Concomitant]
     Active Substance: LACTULOSE
  20. MONUROL [Concomitant]
     Active Substance: FOSFOMYCIN TROMETHAMINE
  21. IPRATROPIUM [Concomitant]
     Active Substance: IPRATROPIUM
  22. URIBEL [Concomitant]
     Active Substance: HYOSCYAMINE SULFATE\METHENAMINE\METHYLENE BLUE\PHENYL SALICYLATE\SODIUM PHOSPHATE, MONOBASIC, MONOHYDRATE
  23. AMOXICILLIN. [Concomitant]
     Active Substance: AMOXICILLIN
  24. ACCU?CHEK [Concomitant]
  25. PROTONIX [Suspect]
     Active Substance: PANTOPRAZOLE SODIUM
     Indication: GASTROOESOPHAGEAL REFLUX DISEASE
     Route: 048
  26. PROTONIX [Suspect]
     Active Substance: PANTOPRAZOLE SODIUM
     Indication: GASTROOESOPHAGEAL REFLUX DISEASE
     Dosage: GENERIC
     Route: 048
     Dates: start: 20130726
  27. LEVOFLOXACIN. [Concomitant]
     Active Substance: LEVOFLOXACIN
     Indication: INFECTION
     Route: 065
     Dates: start: 2012, end: 2015
  28. BENICAR [Concomitant]
     Active Substance: OLMESARTAN MEDOXOMIL
     Indication: HYPERTENSION
     Route: 065
     Dates: start: 2009, end: 2010
  29. DIOVAN [Concomitant]
     Active Substance: VALSARTAN
     Indication: HYPERTENSION
     Route: 065
     Dates: start: 2006, end: 2011
  30. PHENAZOPYRIDINE. [Concomitant]
     Active Substance: PHENAZOPYRIDINE
  31. ALPRAZOLAM. [Concomitant]
     Active Substance: ALPRAZOLAM
  32. CHLORPROMAZIN [Concomitant]
  33. BUTALBITAL/ACETAMINOPHEN/CAFF [Concomitant]
  34. AMLODIPINE BESYLATE. [Concomitant]
     Active Substance: AMLODIPINE BESYLATE
  35. SODIUM BICARBONATE. [Concomitant]
     Active Substance: SODIUM BICARBONATE
  36. PROAIR HFA [Concomitant]
     Active Substance: ALBUTEROL SULFATE
  37. GABAPENTIN. [Concomitant]
     Active Substance: GABAPENTIN
  38. MINOCYCLINE [Concomitant]
     Active Substance: MINOCYCLINE HYDROCHLORIDE
  39. DULOXETINE. [Concomitant]
     Active Substance: DULOXETINE
  40. FEXOFENADINE [Concomitant]
     Active Substance: FEXOFENADINE HYDROCHLORIDE
  41. CYANOCOBALAMIN. [Concomitant]
     Active Substance: CYANOCOBALAMIN
  42. FLOMAX [Concomitant]
     Active Substance: TAMSULOSIN HYDROCHLORIDE
  43. DILAUDID [Concomitant]
     Active Substance: HYDROMORPHONE HYDROCHLORIDE
  44. NEXIUM [Suspect]
     Active Substance: ESOMEPRAZOLE MAGNESIUM
     Indication: GASTROOESOPHAGEAL REFLUX DISEASE
     Route: 048
     Dates: start: 2006, end: 2016
  45. NEXIUM [Suspect]
     Active Substance: ESOMEPRAZOLE MAGNESIUM
     Indication: GASTROOESOPHAGEAL REFLUX DISEASE
     Route: 048
     Dates: start: 20060726
  46. PROTONIX [Suspect]
     Active Substance: PANTOPRAZOLE SODIUM
     Indication: GASTROOESOPHAGEAL REFLUX DISEASE
     Dosage: GENERIC
     Route: 065
     Dates: start: 2011, end: 2018
  47. CIPROFLOXACIN. [Concomitant]
     Active Substance: CIPROFLOXACIN
     Indication: INFECTION
     Route: 065
     Dates: start: 2009, end: 2016
  48. MICARDIS [Concomitant]
     Active Substance: TELMISARTAN
     Indication: HYPERTENSION
     Route: 065
     Dates: start: 20090129
  49. ZOVIRAX [Concomitant]
     Active Substance: ACYCLOVIR
     Indication: INFECTION
     Route: 065
     Dates: start: 2011, end: 2015
  50. ZOLOFT [Concomitant]
     Active Substance: SERTRALINE HYDROCHLORIDE
  51. LEXAPRO [Concomitant]
     Active Substance: ESCITALOPRAM OXALATE
  52. BISOPROLOL FUMARATE. [Concomitant]
     Active Substance: BISOPROLOL FUMARATE
  53. HYDROXYZINE [Concomitant]
     Active Substance: HYDROXYZINE HYDROCHLORIDE
  54. NEO/POLY/DEX [Concomitant]
     Active Substance: DEXAMETHASONE\NEOMYCIN\POLYMYXIN B SULFATE
  55. LINEZOLID. [Concomitant]
     Active Substance: LINEZOLID
  56. LANTANOPROST [Concomitant]
     Active Substance: LATANOPROST
  57. ALPHAGAN P [Concomitant]
     Active Substance: BRIMONIDINE TARTRATE
  58. LINZESS [Concomitant]
     Active Substance: LINACLOTIDE
  59. SYMBICORT [Concomitant]
     Active Substance: BUDESONIDE\FORMOTEROL FUMARATE DIHYDRATE
  60. POLYETHYLENE GLYCOL [Concomitant]
     Active Substance: POLYETHYLENE GLYCOLS
  61. ZUTRIPRO [Concomitant]
     Active Substance: CHLORPHENIRAMINE MALEATE\HYDROCODONE BITARTRATE\PSEUDOEPHEDRINE HYDROCHLORIDE
  62. ACETAMINOPHEN AND CODEINE [Concomitant]
     Active Substance: ACETAMINOPHEN\CODEINE PHOSPHATE
  63. ACTONEL [Concomitant]
     Active Substance: RISEDRONATE SODIUM
  64. CILOSTAZOL. [Concomitant]
     Active Substance: CILOSTAZOL
  65. PROPOXYPHENE. [Concomitant]
     Active Substance: PROPOXYPHENE
  66. ANTIVERT [Concomitant]
     Active Substance: MECLIZINE HYDROCHLORIDE
  67. VISTARIL [Concomitant]
     Active Substance: HYDROXYZINE PAMOATE
  68. HEPARIN [Concomitant]
     Active Substance: HEPARIN SODIUM
  69. OMEPRAZOLE. [Suspect]
     Active Substance: OMEPRAZOLE
     Indication: GASTROOESOPHAGEAL REFLUX DISEASE
     Dosage: GENERIC20.0MG UNKNOWN
     Route: 048
     Dates: start: 20091002
  70. LISINOPRIL. [Concomitant]
     Active Substance: LISINOPRIL
     Indication: HYPERTENSION
     Route: 065
     Dates: start: 2007, end: 2016
  71. VYTORIN [Concomitant]
     Active Substance: EZETIMIBE\SIMVASTATIN
  72. CEFDINIR. [Concomitant]
     Active Substance: CEFDINIR
  73. ZOSTAVAX [Concomitant]
     Active Substance: VARICELLA-ZOSTER VIRUS STRAIN OKA/MERCK LIVE ANTIGEN
  74. AMITIZA [Concomitant]
     Active Substance: LUBIPROSTONE
  75. LAC?HYDRIN [Concomitant]
     Active Substance: AMMONIUM LACTATE
  76. CHERATUSSIN [Concomitant]
     Active Substance: AMMONIUM CHLORIDE\DEXTROMETHORPHAN\SODIUM CITRATE
  77. MAGNESIUM OXIDE. [Concomitant]
     Active Substance: MAGNESIUM OXIDE
  78. NYSTATIN/TRIAMCINOLONE [Concomitant]
     Active Substance: NYSTATIN\TRIAMCINOLONE
  79. RAPAFLO [Concomitant]
     Active Substance: SILODOSIN
  80. MACRODANTIN MACROCRYSTALS [Concomitant]
  81. FERAHEME [Concomitant]
     Active Substance: FERUMOXYTOL NON-STOICHIOMETRIC MAGNETITE
  82. MERREM [Concomitant]
     Active Substance: MEROPENEM
  83. PREVACID [Suspect]
     Active Substance: LANSOPRAZOLE
     Indication: GASTROOESOPHAGEAL REFLUX DISEASE
     Route: 065
     Dates: start: 2010, end: 2017
  84. PROTONIX [Suspect]
     Active Substance: PANTOPRAZOLE SODIUM
     Indication: GASTROOESOPHAGEAL REFLUX DISEASE
     Dosage: GENERIC
     Route: 048
     Dates: start: 20130726
  85. LORTAB [Concomitant]
     Active Substance: ACETAMINOPHEN\HYDROCODONE BITARTRATE
  86. ZETIA [Concomitant]
     Active Substance: EZETIMIBE
  87. OXYCODONE?ACETAMINOPHEN [Concomitant]
     Active Substance: ACETAMINOPHEN\OXYCODONE HYDROCHLORIDE
  88. ALENDRONATE SODIUM. [Concomitant]
     Active Substance: ALENDRONATE SODIUM
  89. JANUMET [Concomitant]
     Active Substance: METFORMIN HYDROCHLORIDE\SITAGLIPTIN PHOSPHATE
  90. MIRTAZAPINE. [Concomitant]
     Active Substance: MIRTAZAPINE
  91. QUETIAPINE. [Concomitant]
     Active Substance: QUETIAPINE
  92. OXYBUTYNIN. [Concomitant]
     Active Substance: OXYBUTYNIN CHLORIDE
  93. FOLIC ACID. [Concomitant]
     Active Substance: FOLIC ACID
  94. PYRIDIUM [Concomitant]
     Active Substance: PHENAZOPYRIDINE
  95. CICLOPIROX. [Concomitant]
     Active Substance: CICLOPIROX
  96. HEMAX [Concomitant]
  97. PROPRANOLOL [Concomitant]
     Active Substance: PROPRANOLOL HYDROCHLORIDE
  98. AMARYL [Concomitant]
     Active Substance: GLIMEPIRIDE
  99. AMITRIPTYLINE [Concomitant]
     Active Substance: AMITRIPTYLINE
  100. TANDEM [Concomitant]
     Active Substance: FERROUS ASPARTO GLYCINATE\FERROUS FUMARATE
  101. LIVALO [Concomitant]
     Active Substance: PITAVASTATIN CALCIUM
  102. AZITHROMYCIN ANHYDROUS. [Concomitant]
     Active Substance: AZITHROMYCIN ANHYDROUS
     Indication: INFECTION
     Route: 065
     Dates: start: 2006, end: 2017
  103. TRAJENTA [Concomitant]
     Active Substance: LINAGLIPTIN
  104. TOPAMAX [Concomitant]
     Active Substance: TOPIRAMATE
  105. MECLIZINE [Concomitant]
     Active Substance: MECLIZINE HYDROCHLORIDE
  106. PROBIOTIC [Concomitant]
     Active Substance: PROBIOTICS NOS
  107. DOCQLACE [Concomitant]
     Active Substance: DOCUSATE SODIUM
  108. METHYLPREDNISOLONE. [Concomitant]
     Active Substance: METHYLPREDNISOLONE
  109. LANTUS SOLOSTAR [Concomitant]
     Active Substance: INSULIN GLARGINE
  110. BYDUREON [Concomitant]
     Active Substance: EXENATIDE
  111. RANITIDINE. [Concomitant]
     Active Substance: RANITIDINE
  112. TAMIFLU [Concomitant]
     Active Substance: OSELTAMIVIR PHOSPHATE
  113. HYOSCYAMINE. [Concomitant]
     Active Substance: HYOSCYAMINE
  114. METOCLOPRAMIDE. [Concomitant]
     Active Substance: METOCLOPRAMIDE
  115. NABUMETONE. [Concomitant]
     Active Substance: NABUMETONE
  116. NEOMYCIN. [Concomitant]
     Active Substance: NEOMYCIN
  117. FOLTRIN [Concomitant]
  118. VITAMIN B COMPLEX [Concomitant]
     Active Substance: CYANOCOBALAMIN\DEXPANTHENOL\NIACINAMIDE\PYRIDOXINE HYDROCHLORIDE\RIBOFLAVIN 5^-PHOSPHATE SODIUM\THIAMINE HYDROCHLORIDE\VITAMIN B COMPLEX
  119. REQUIP [Concomitant]
     Active Substance: ROPINIROLE HYDROCHLORIDE
  120. GLUCOSE [Concomitant]
     Active Substance: DEXTROSE
  121. DEXILANT [Suspect]
     Active Substance: DEXLANSOPRAZOLE
     Indication: GASTROOESOPHAGEAL REFLUX DISEASE
     Route: 065
     Dates: start: 2006, end: 2016
  122. PROTONIX [Suspect]
     Active Substance: PANTOPRAZOLE SODIUM
     Indication: GASTROOESOPHAGEAL REFLUX DISEASE
     Route: 048
  123. ROPINIROLE. [Concomitant]
     Active Substance: ROPINIROLE
  124. AMBIEN [Concomitant]
     Active Substance: ZOLPIDEM TARTRATE
  125. LOSARTAN/HCTZ [Concomitant]
     Active Substance: HYDROCHLOROTHIAZIDE\LOSARTAN
  126. ZALEPLON. [Concomitant]
     Active Substance: ZALEPLON
  127. ONDANSETRON [Concomitant]
     Active Substance: ONDANSETRON
  128. TRIAMCIN/ORABAS [Concomitant]
  129. JANUVIA [Concomitant]
     Active Substance: SITAGLIPTIN PHOSPHATE
  130. INTEGRA [Concomitant]
     Active Substance: DIETARY SUPPLEMENT
  131. ERYTHROMYCIN. [Concomitant]
     Active Substance: ERYTHROMYCIN
  132. TETRACYCLINE [Concomitant]
     Active Substance: TETRACYCLINE
  133. NAPROXEN. [Concomitant]
     Active Substance: NAPROXEN
     Indication: PAIN
     Route: 065
     Dates: start: 20121029
  134. SIMVASTATIN. [Concomitant]
     Active Substance: SIMVASTATIN
     Indication: BLOOD CHOLESTEROL INCREASED
     Route: 065
     Dates: start: 2009, end: 2015
  135. PROCHLORPERAZINE. [Concomitant]
     Active Substance: PROCHLORPERAZINE
  136. OXYCODONE HCT [Concomitant]
  137. HYDROMORPHONE [Concomitant]
     Active Substance: HYDROMORPHONE
  138. CLOTRIMAZOLE AND BETAMETHASONE DIPROPIONATE [Concomitant]
     Active Substance: BETAMETHASONE\BETAMETHASONE DIPROPIONATE\CLOTRIMAZOLE
  139. FLORANEX [Concomitant]
     Active Substance: LACTOBACILLUS ACIDOPHILUS\LACTOBACILLUS DELBRUECKII SUBSP. BULGARICUS
  140. LYRICA [Concomitant]
     Active Substance: PREGABALIN
  141. ESCITALOPRAM [Concomitant]
     Active Substance: ESCITALOPRAM OXALATE
  142. CYMBALTA [Concomitant]
     Active Substance: DULOXETINE HYDROCHLORIDE
  143. CRESTOR [Concomitant]
     Active Substance: ROSUVASTATIN CALCIUM
  144. AVANDARYL [Concomitant]
     Active Substance: GLIMEPIRIDE\ROSIGLITAZONE MALEATE
  145. LAMISIL [Concomitant]
     Active Substance: TERBINAFINE HYDROCHLORIDE
  146. NORVASC [Concomitant]
     Active Substance: AMLODIPINE BESYLATE

REACTIONS (6)
  - Chronic kidney disease [Not Recovered/Not Resolved]
  - Rebound acid hypersecretion [Unknown]
  - Nephrogenic anaemia [Unknown]
  - Renal failure [Unknown]
  - Renal injury [Unknown]
  - Acute kidney injury [Unknown]

NARRATIVE: CASE EVENT DATE: 2011
